FAERS Safety Report 8782373 (Version 2)
Quarter: 2012Q4

REPORT INFORMATION
  Report Type: 
  Country: US (occurrence: US)
  Receive Date: 20120913
  Receipt Date: 20121010
  Transmission Date: 20130627
  Serious: Yes (Other)
  Sender: FDA-Public Use
  Company Number: CHPA2012US019353

PATIENT
  Sex: Female

DRUGS (1)
  1. EXCEDRIN EXTRA STRENGTH [Suspect]
     Indication: PAIN
     Dosage: 1/2 to 1 DF, Unk
     Route: 048
     Dates: start: 1960

REACTIONS (14)
  - Loss of consciousness [Recovered/Resolved]
  - Concussion [Recovered/Resolved]
  - Amnesia [Not Recovered/Not Resolved]
  - Limb deformity [Not Recovered/Not Resolved]
  - Muscle atrophy [Not Recovered/Not Resolved]
  - Muscle injury [Not Recovered/Not Resolved]
  - Fall [Recovered/Resolved]
  - Scar [Not Recovered/Not Resolved]
  - Joint dislocation [Not Recovered/Not Resolved]
  - Gait disturbance [Not Recovered/Not Resolved]
  - Shock [Recovered/Resolved]
  - Underdose [Unknown]
  - Wrong technique in drug usage process [Unknown]
  - Product quality issue [None]
